FAERS Safety Report 9631687 (Version 1)
Quarter: 2013Q4

REPORT INFORMATION
  Report Type: Spontaneous
  Country: US (occurrence: US)
  Receive Date: 20131018
  Receipt Date: 20131018
  Transmission Date: 20140711
  Serious: Yes (Hospitalization, Other)
  Sender: FDA-Public Use
  Company Number: US-ROXANE LABORATORIES, INC.-2013-RO-01687RO

PATIENT
  Age: 46 Year
  Sex: Male

DRUGS (5)
  1. RISPERIDONE [Suspect]
  2. LITHIUM CARBONATE [Suspect]
  3. LORAZEPAM [Suspect]
  4. BUPROPION [Suspect]
  5. ARIPIPRAZOLE [Suspect]

REACTIONS (3)
  - Catatonia [Recovered/Resolved]
  - Neuroleptic malignant syndrome [Recovered/Resolved]
  - Agitation [Unknown]
